FAERS Safety Report 5719898-X (Version None)
Quarter: 2008Q2

REPORT INFORMATION
  Report Type: 
  Country: None (occurrence: None)
  Receive Date: 20080428
  Receipt Date: 20080318
  Transmission Date: 20081010
  Serious: No
  Sender: FDA-Public Use
  Company Number: A0703876A

PATIENT
  Age: 29 Year
  Sex: Female
  Weight: 68.2 kg

DRUGS (2)
  1. ZOFRAN [Suspect]
     Dosage: 8MG TWICE PER DAY
     Route: 048
     Dates: start: 20070101
  2. VITAMIN TAB [Concomitant]

REACTIONS (2)
  - DRUG EXPOSURE DURING PREGNANCY [None]
  - EXPIRED DRUG ADMINISTERED [None]
